FAERS Safety Report 24854038 (Version 1)
Quarter: 2025Q1

REPORT INFORMATION
  Report Type: Spontaneous
  Country: SA (occurrence: SA)
  Receive Date: 20250117
  Receipt Date: 20250117
  Transmission Date: 20250408
  Serious: Yes (Other)
  Sender: IPCA
  Company Number: SA-IPCA LABORATORIES LIMITED-IPC-2025-SA-000092

PATIENT

DRUGS (2)
  1. METFORMIN [Suspect]
     Active Substance: METFORMIN HYDROCHLORIDE
     Indication: Polycystic ovarian syndrome
     Route: 065
  2. METFORMIN [Suspect]
     Active Substance: METFORMIN HYDROCHLORIDE
     Route: 065

REACTIONS (7)
  - Neuropathy peripheral [Recovered/Resolved]
  - Eyelid myokymia [Recovered/Resolved]
  - Vitamin B12 deficiency [Recovered/Resolved]
  - Diarrhoea [Recovered/Resolved]
  - Paraesthesia [Recovered/Resolved]
  - Blepharospasm [Recovered/Resolved]
  - Condition aggravated [Recovered/Resolved]
